FAERS Safety Report 8865038 (Version 1)
Quarter: 2012Q4

REPORT INFORMATION
  Report Type: 
  Country: US (occurrence: US)
  Receive Date: 20121024
  Receipt Date: 20121024
  Transmission Date: 20130627
  Serious: No
  Sender: FDA-Public Use
  Company Number: US-AMGEN-USASP2012000688

PATIENT
  Sex: Female
  Weight: 63.04 kg

DRUGS (2)
  1. ENBREL [Suspect]
     Indication: PRODUCT USED FOR UNKNOWN INDICATION
     Dosage: UNK
     Route: 058
     Dates: start: 2011
  2. HUMIRA [Concomitant]
     Dosage: UNK

REACTIONS (3)
  - Constipation [Unknown]
  - Rash [Unknown]
  - Infection [Unknown]
